FAERS Safety Report 10207800 (Version 2)
Quarter: 2014Q2

REPORT INFORMATION
  Report Type: Report from Study
  Country: US (occurrence: US)
  Receive Date: 20140530
  Receipt Date: 20140606
  Transmission Date: 20141212
  Serious: Yes (Other)
  Sender: FDA-Public Use
  Company Number: US-BAXTER-2014BAX026557

PATIENT
  Age: 48 Year
  Sex: Female
  Weight: 124.4 kg

DRUGS (20)
  1. GAMMAGARD S/D [Suspect]
     Indication: IMMUNODEFICIENCY COMMON VARIABLE
     Dosage: 6-10 GRAM VIALS
     Route: 042
     Dates: start: 20140320, end: 20140320
  2. GAMMAGARD S/D [Suspect]
     Dosage: 6-10 GRAM VIALS
     Route: 042
     Dates: start: 20140424, end: 20140424
  3. GAMMAGARD S/D [Suspect]
     Route: 042
     Dates: start: 20100720
  4. GAMMAGARD S/D [Suspect]
     Route: 042
     Dates: start: 20140522, end: 20140522
  5. MAXAIR [Concomitant]
     Indication: PRODUCT USED FOR UNKNOWN INDICATION
     Dosage: 200 MCG/INHALATION AS NEEDED
     Route: 055
  6. LEXAPRO [Concomitant]
     Indication: PRODUCT USED FOR UNKNOWN INDICATION
     Route: 048
  7. MOBIC [Concomitant]
     Indication: PRODUCT USED FOR UNKNOWN INDICATION
     Dosage: AS NEEDED
     Route: 048
  8. STRATTERA [Concomitant]
     Indication: PRODUCT USED FOR UNKNOWN INDICATION
     Dosage: AS NEEDED
     Route: 048
  9. CARTIA XT [Concomitant]
     Indication: PRODUCT USED FOR UNKNOWN INDICATION
     Dosage: AS NEEDED
     Route: 048
  10. HYPERTONIC NASAL WASH SOLUTION [Concomitant]
     Indication: PRODUCT USED FOR UNKNOWN INDICATION
     Route: 045
  11. ALISKIREN/HYDROCHLOROTHIAZIDE [Concomitant]
     Indication: PRODUCT USED FOR UNKNOWN INDICATION
     Dosage: 150/12.5 MG
     Route: 048
  12. SYMBICORT [Concomitant]
     Indication: PRODUCT USED FOR UNKNOWN INDICATION
     Dosage: 160/4.5 MCG/ACTUATION HFA AEROSOL INHALER, 2 PUFFS TWICE PER DAY
     Route: 055
  13. WELLBUTRIN [Concomitant]
     Indication: PRODUCT USED FOR UNKNOWN INDICATION
     Route: 048
  14. B12/LEVOMEFOLATE CALCIUM/B6 [Concomitant]
     Indication: PRODUCT USED FOR UNKNOWN INDICATION
     Dosage: 2/1.13/25 MG
     Route: 048
  15. BUTALBITAL/ACETOMINOPHEN/CAFFEINE [Concomitant]
     Indication: PRODUCT USED FOR UNKNOWN INDICATION
     Dosage: 50/325/40 MG
     Route: 048
  16. NASONEX [Concomitant]
     Indication: PRODUCT USED FOR UNKNOWN INDICATION
     Dosage: 50 MCG/ACTUATION SPRAY, 1-2 PUFFS EVERY DAY
     Route: 045
  17. VITAMIN B12/FOLIC ACID [Concomitant]
     Indication: PRODUCT USED FOR UNKNOWN INDICATION
     Dosage: 0.5/1 MG
     Route: 048
  18. ALPRAZOLAM [Concomitant]
     Indication: PRODUCT USED FOR UNKNOWN INDICATION
     Dosage: AS NEEDED
     Route: 048
  19. DIPHENHYDRAMINE [Concomitant]
     Indication: PREMEDICATION
     Dosage: BEFORE GGSD: 25 MG/0.5 ML SLOW IV PUSH
     Route: 042
     Dates: start: 20140522, end: 20140522
  20. AMOXICILLIN/POSTASSIUM CLAVULANATE [Concomitant]
     Indication: PRODUCT USED FOR UNKNOWN INDICATION
     Dosage: 1-875/125 MG TABLET EVERY OTHER DAY
     Route: 048

REACTIONS (8)
  - Thrombophlebitis [Recovered/Resolved]
  - Infusion site induration [Recovered/Resolved]
  - Infusion site discomfort [Recovered/Resolved]
  - Migraine [Unknown]
  - Malaise [Not Recovered/Not Resolved]
  - Fatigue [Recovered/Resolved]
  - Oedema [Unknown]
  - Pyrexia [Unknown]
